FAERS Safety Report 21934118 (Version 1)
Quarter: 2023Q1

REPORT INFORMATION
  Report Type: Report from Study
  Country: ZA (occurrence: ZA)
  Receive Date: 20230201
  Receipt Date: 20230201
  Transmission Date: 20230417
  Serious: Yes (Other)
  Sender: FDA-Public Use
  Company Number: ZA-002147023-NVSC2023ZA019390

PATIENT
  Age: 62 Year
  Sex: Male

DRUGS (1)
  1. BROLUCIZUMAB [Suspect]
     Active Substance: BROLUCIZUMAB
     Indication: Macular degeneration
     Dosage: 27.6 MG IN 0.23ML, QMO
     Route: 047
     Dates: start: 20210920

REACTIONS (1)
  - Eye haemorrhage [Unknown]
